FAERS Safety Report 5590619-7 (Version None)
Quarter: 2008Q1

REPORT INFORMATION
  Report Type: 
  Country: None (occurrence: None)
  Receive Date: 20080114
  Receipt Date: 20080102
  Transmission Date: 20080703
  Serious: Yes (Death, Hospitalization)
  Sender: FDA-Public Use
  Company Number: BR-PFIZER INC-2007071444

PATIENT
  Sex: Male

DRUGS (2)
  1. CAVERJECT [Suspect]
     Indication: ERECTILE DYSFUNCTION
     Route: 050
     Dates: start: 20070101, end: 20070901
  2. INSULIN [Concomitant]

REACTIONS (3)
  - AMERICAN TRYPANOSOMIASIS [None]
  - DEATH [None]
  - DRUG INEFFECTIVE [None]
